FAERS Safety Report 9885722 (Version 1)
Quarter: 2014Q1

REPORT INFORMATION
  Report Type: Spontaneous
  Country: GB (occurrence: GB)
  Receive Date: 20140210
  Receipt Date: 20140210
  Transmission Date: 20141002
  Serious: Yes (Death)
  Sender: FDA-Public Use
  Company Number: GB-AMGEN-GBRSP2014008771

PATIENT
  Sex: 0

DRUGS (4)
  1. NEULASTA [Suspect]
     Indication: PRODUCT USED FOR UNKNOWN INDICATION
     Dosage: UNK
     Route: 065
  2. DOCETAXEL [Concomitant]
     Indication: HEAD AND NECK CANCER
     Dosage: UNK
  3. CISPLATIN [Concomitant]
     Indication: HEAD AND NECK CANCER
     Dosage: UNK
  4. 5 FU [Concomitant]
     Indication: HEAD AND NECK CANCER
     Dosage: UNK

REACTIONS (1)
  - Death [Fatal]
